FAERS Safety Report 11142160 (Version 1)
Quarter: 2015Q2

REPORT INFORMATION
  Report Type: Spontaneous
  Country: US (occurrence: US)
  Receive Date: 20150527
  Receipt Date: 20150527
  Transmission Date: 20150821
  Serious: No
  Sender: FDA-Public Use
  Company Number: US-GLAXOSMITHKLINE-US2015070704

PATIENT
  Age: 68 Year
  Sex: Female

DRUGS (12)
  1. ZITHROMAX [Concomitant]
     Active Substance: AZITHROMYCIN DIHYDRATE
  2. CALCIUM [Concomitant]
     Active Substance: CALCIUM
  3. VITAMIN C [Concomitant]
     Active Substance: ASCORBIC ACID
  4. VENTOLIN [Suspect]
     Active Substance: ALBUTEROL SULFATE
     Indication: ASTHMA
     Dosage: 2 PUFF(S), PRN
     Route: 055
     Dates: start: 20150513
  5. VENTOLIN [Suspect]
     Active Substance: ALBUTEROL SULFATE
     Indication: EMPHYSEMA
  6. MAGNESIUM [Concomitant]
     Active Substance: MAGNESIUM
  7. PREDNISONE. [Concomitant]
     Active Substance: PREDNISONE
  8. VITAMIN D [Concomitant]
     Active Substance: CHOLECALCIFEROL
  9. SINGULAIR [Concomitant]
     Active Substance: MONTELUKAST SODIUM
  10. VENTOLIN [Suspect]
     Active Substance: ALBUTEROL SULFATE
     Indication: ASTHMA
  11. VENTOLIN [Suspect]
     Active Substance: ALBUTEROL SULFATE
     Indication: CHRONIC OBSTRUCTIVE PULMONARY DISEASE
  12. CLARITIN [Concomitant]
     Active Substance: LORATADINE

REACTIONS (4)
  - Sinusitis [Recovering/Resolving]
  - Dizziness [Recovering/Resolving]
  - Drug ineffective [Recovering/Resolving]
  - Product quality issue [Unknown]

NARRATIVE: CASE EVENT DATE: 20150513
